FAERS Safety Report 5030383-3 (Version None)
Quarter: 2006Q2

REPORT INFORMATION
  Report Type: 
  Country: None (occurrence: None)
  Receive Date: 20060615
  Receipt Date: 20060612
  Transmission Date: 20061013
  Serious: Yes (Other)
  Sender: FDA-Public Use
  Company Number: 007712

PATIENT
  Age: 58 Year
  Sex: Female

DRUGS (5)
  1. MEDROXYPROGESTERONE ACETATE [Suspect]
     Dosage: ORAL
     Route: 048
     Dates: start: 19910101, end: 19960701
  2. PREMARIN [Suspect]
     Dosage: ORAL
     Route: 048
     Dates: start: 19910101, end: 19960701
  3. PROVERA [Suspect]
     Dosage: ORAL
     Route: 048
     Dates: start: 19910101, end: 19960701
  4. PREMPRO [Suspect]
     Dosage: ORAL
     Route: 048
     Dates: start: 19960801, end: 20021201
  5. FEMHRT [Suspect]
     Dosage: ORAL
     Route: 048
     Dates: start: 20030101, end: 20031201

REACTIONS (1)
  - BREAST CANCER FEMALE [None]
